FAERS Safety Report 24398174 (Version 2)
Quarter: 2024Q4

REPORT INFORMATION
  Report Type: Spontaneous
  Country: US (occurrence: US)
  Receive Date: 20241004
  Receipt Date: 20241004
  Transmission Date: 20250115
  Serious: No
  Sender: ALEXION PHARMACEUTICALS
  Company Number: US-AstraZeneca-CH-00710597A

PATIENT

DRUGS (8)
  1. TEZSPIRE [Suspect]
     Active Substance: TEZEPELUMAB-EKKO
     Indication: Asthma
     Dosage: UNK UNK, Q4W
  2. TEZSPIRE [Suspect]
     Active Substance: TEZEPELUMAB-EKKO
     Dosage: UNK UNK, Q4W
  3. TEZSPIRE [Suspect]
     Active Substance: TEZEPELUMAB-EKKO
     Dosage: UNK UNK, Q4W
  4. TEZSPIRE [Suspect]
     Active Substance: TEZEPELUMAB-EKKO
     Dosage: UNK UNK, Q4W
  5. SPIRIVA, DULERA, CINGULAR [Concomitant]
     Route: 065
  6. SPIRIVA, DULERA, CINGULAR [Concomitant]
  7. SPIRIVA, DULERA, CINGULAR [Concomitant]
     Route: 065
  8. SPIRIVA, DULERA, CINGULAR [Concomitant]

REACTIONS (2)
  - Arthralgia [Unknown]
  - Asthma [Unknown]
